FAERS Safety Report 7294054-5 (Version None)
Quarter: 2011Q1

REPORT INFORMATION
  Report Type: 
  Country: None (occurrence: None)
  Receive Date: 20110215
  Receipt Date: 20110209
  Transmission Date: 20110831
  Serious: Yes (Other)
  Sender: FDA-Public Use
  Company Number: JP-ROCHE-758894

PATIENT
  Age: 77 Year

DRUGS (1)
  1. ACTEMRA [Suspect]
     Dosage: DOSAGE WAS UNCERTAIN.
     Route: 041

REACTIONS (1)
  - DISSEMINATED INTRAVASCULAR COAGULATION [None]
